FAERS Safety Report 20838780 (Version 1)
Quarter: 2022Q2

REPORT INFORMATION
  Report Type: Spontaneous
  Country: US (occurrence: None)
  Receive Date: 20220516
  Receipt Date: 20220516
  Transmission Date: 20220721
  Serious: Yes (Hospitalization, Disabling)
  Sender: FDA-Public Use
  Company Number: None

PATIENT
  Age: 81 Year
  Sex: Female
  Weight: 85.5 kg

DRUGS (9)
  1. TOLTERODINE TARTRATE [Suspect]
     Active Substance: TOLTERODINE TARTRATE
     Indication: Hypertonic bladder
     Dosage: OTHER QUANTITY : 1 CAPSULE(S);?FREQUENCY : DAILY;?
     Route: 048
     Dates: start: 20220510, end: 20220512
  2. LEVOTHYROXINE [Concomitant]
  3. PANTOPRAZOLE [Concomitant]
     Active Substance: PANTOPRAZOLE
  4. TRAMADOL [Concomitant]
     Active Substance: TRAMADOL
  5. ELIQUIS [Concomitant]
     Active Substance: APIXABAN
  6. HYDROCHLOROTHIAZIDE [Concomitant]
     Active Substance: HYDROCHLOROTHIAZIDE
  7. VITAMIN D3 [Concomitant]
     Active Substance: CHOLECALCIFEROL
  8. Iron Complex [Concomitant]
  9. D-MANNOSE [Concomitant]

REACTIONS (5)
  - Dizziness [None]
  - Vision blurred [None]
  - Cerebrovascular accident [None]
  - Impaired driving ability [None]
  - Ophthalmoplegia [None]

NARRATIVE: CASE EVENT DATE: 20220512
